FAERS Safety Report 21948451 (Version 1)
Quarter: 2023Q1

REPORT INFORMATION
  Report Type: Spontaneous
  Country: AU (occurrence: AU)
  Receive Date: 20230203
  Receipt Date: 20230203
  Transmission Date: 20230417
  Serious: Yes (Other)
  Sender: FDA-Public Use
  Company Number: AU-CIPLA (EU) LIMITED-2023AU00480

PATIENT

DRUGS (2)
  1. GEFITINIB [Suspect]
     Active Substance: GEFITINIB
     Indication: Non-small cell lung cancer metastatic
     Dosage: UNK
     Route: 048
     Dates: start: 201902, end: 202102
  2. OSIMERTINIB [Suspect]
     Active Substance: OSIMERTINIB
     Indication: Non-small cell lung cancer metastatic
     Dosage: 160 MILLIGRAM, QD
     Route: 048
     Dates: start: 202102, end: 202111

REACTIONS (4)
  - Metastases to central nervous system [Unknown]
  - Malignant neoplasm progression [Unknown]
  - Metastases to liver [Unknown]
  - Drug intolerance [Unknown]

NARRATIVE: CASE EVENT DATE: 20211101
